FAERS Safety Report 8924335 (Version 1)
Quarter: 2012Q4

REPORT INFORMATION
  Report Type: 
  Country: SE (occurrence: SE)
  Receive Date: 20121126
  Receipt Date: 20121126
  Transmission Date: 20130627
  Serious: Yes (Hospitalization)
  Sender: FDA-Public Use
  Company Number: SE-GLAXOSMITHKLINE-B0846557A

PATIENT
  Age: 38 Year
  Sex: Male

DRUGS (11)
  1. LAMICTAL [Suspect]
     Indication: DEPRESSION
     Route: 065
     Dates: start: 201209, end: 20120916
  2. CIPRALEX [Concomitant]
  3. ATACAND [Concomitant]
  4. EDRONAX [Concomitant]
  5. INEGY [Concomitant]
  6. METFORMIN [Concomitant]
  7. JANUVIA [Concomitant]
  8. NOZINAN [Concomitant]
  9. SOBRIL [Concomitant]
  10. STILNOCT [Concomitant]
  11. LITHIONIT [Concomitant]

REACTIONS (1)
  - Anaphylactic reaction [Recovered/Resolved]
